FAERS Safety Report 5168485-3 (Version None)
Quarter: 2006Q4

REPORT INFORMATION
  Report Type: 
  Country: None (occurrence: None)
  Receive Date: 20061201
  Receipt Date: 20060801
  Transmission Date: 20070319
  Serious: Yes (Hospitalization)
  Sender: FDA-Public Use
  Company Number: 150193ISR

PATIENT
  Age: 91 Year
  Sex: Male

DRUGS (15)
  1. ISOSORBIDE MONONITRATE [Suspect]
     Dosage: ORAL
     Route: 048
     Dates: end: 20060301
  2. OMEPRAZOLE [Concomitant]
  3. ZOPICLONE [Concomitant]
  4. LACTULOSE [Concomitant]
  5. GLYCERYL TRINITRATE [Concomitant]
  6. GLYCERYL TRINITRATE [Concomitant]
  7. SPASMOFEN [Concomitant]
  8. HALOPERIDOL [Concomitant]
  9. FERROUS FUMARATE [Concomitant]
  10. MALVITONA [Concomitant]
  11. SODIUM PICOSULFATE [Concomitant]
  12. PREDNISOLONE [Concomitant]
  13. ASPIRIN [Concomitant]
  14. MACROGOL [Concomitant]
  15. CITALOPRAM HYDROBROMIDE [Concomitant]

REACTIONS (2)
  - TRANSIENT ISCHAEMIC ATTACK [None]
  - VERTIGO [None]
